FAERS Safety Report 7433063-X (Version None)
Quarter: 2011Q2

REPORT INFORMATION
  Report Type: 
  Country: None (occurrence: None)
  Receive Date: 20110415
  Receipt Date: 20110330
  Transmission Date: 20111010
  Serious: Yes (Life-Threatening, Hospitalization)
  Sender: FDA-Public Use
  Company Number: AUR-APL-2011-01172

PATIENT
  Age: 37 Year
  Sex: Female

DRUGS (3)
  1. TETANUS IMMUNE GLOBULIN (HUMAN) [Suspect]
     Dosage: INTRAMUSCUALAR
     Route: 030
  2. CEFAZOLIN [Suspect]
     Dosage: 1G-INTRAVENOUS
     Route: 042
  3. HYDROMORPHONE HCL [Suspect]
     Dosage: 2MG-INTRAVENOUS
     Route: 042

REACTIONS (6)
  - FALL [None]
  - RESPIRATORY ARREST [None]
  - ANAPHYLACTIC REACTION [None]
  - CONCUSSION [None]
  - SKULL FRACTURE [None]
  - LIMB INJURY [None]
